FAERS Safety Report 18010937 (Version 1)
Quarter: 2020Q3

REPORT INFORMATION
  Report Type: Spontaneous
  Country: IR (occurrence: IR)
  Receive Date: 20200710
  Receipt Date: 20200710
  Transmission Date: 20201103
  Serious: Yes (Hospitalization)
  Sender: FDA-Public Use
  Company Number: NVSC2020IR190308

PATIENT
  Age: 50 Year
  Sex: Female

DRUGS (4)
  1. IMIPENEM [Suspect]
     Active Substance: IMIPENEM
     Indication: COVID-19
     Dosage: UNK
     Route: 065
  2. HYDROXYCHLOROQUINE [Suspect]
     Active Substance: HYDROXYCHLOROQUINE
     Indication: COVID-19
     Dosage: UNK
     Route: 065
  3. KALETRA [Suspect]
     Active Substance: LOPINAVIR\RITONAVIR
     Indication: COVID-19
     Dosage: UNK
     Route: 065
  4. VANCOMYCIN [Suspect]
     Active Substance: VANCOMYCIN
     Indication: COVID-19
     Dosage: UNK
     Route: 065

REACTIONS (4)
  - COVID-19 [Recovered/Resolved]
  - Condition aggravated [Recovered/Resolved]
  - Product use in unapproved indication [Unknown]
  - Treatment failure [Unknown]
